FAERS Safety Report 8772950 (Version 2)
Quarter: 2012Q4

REPORT INFORMATION
  Report Type: 
  Country: AU (occurrence: AU)
  Receive Date: 20120908
  Receipt Date: 20121012
  Transmission Date: 20130627
  Serious: Yes (Death)
  Sender: FDA-Public Use
  Company Number: AU-B.I. PHARMACEUTICALS,INC./RIDGEFIELD-2012-AU-01578AU

PATIENT
  Sex: Male

DRUGS (7)
  1. PRADAXA [Suspect]
     Indication: CEREBROVASCULAR ACCIDENT PROPHYLAXIS
     Dosage: 220 mg
     Dates: start: 20110902
  2. PRADAXA [Suspect]
     Indication: ATRIAL FIBRILLATION
  3. LIPITOR [Concomitant]
  4. METOPROLOL [Concomitant]
     Dosage: 50 mg
  5. DURIDE [Concomitant]
  6. NITROLINGUAL SPRAY [Concomitant]
  7. ZOLADEX [Concomitant]
     Dosage: 10.8mg/ml every 3 months

REACTIONS (1)
  - Myocardial ischaemia [Fatal]
